FAERS Safety Report 8017343-5 (Version None)
Quarter: 2012Q1

REPORT INFORMATION
  Report Type: 
  Country: None (occurrence: None)
  Receive Date: 20120102
  Receipt Date: 20111227
  Transmission Date: 20120608
  Serious: Yes (Hospitalization)
  Sender: FDA-Public Use
  Company Number: DE-ROCHE-1018683

PATIENT
  Age: 76 Year
  Sex: Female
  Weight: 74.4 kg

DRUGS (14)
  1. ASPIRIN [Concomitant]
  2. PERINDOPRIL ERBUMINE [Concomitant]
  3. XIPAMID [Concomitant]
  4. TORSEMIDE [Concomitant]
  5. CONCOR 5 [Concomitant]
  6. ACTRAPHANE HM 30/70 [Concomitant]
  7. SPIRONOLACTONE [Concomitant]
  8. ZOLPIDEM [Concomitant]
  9. PENTAERYTHRITOL TETRANITRATE [Concomitant]
  10. VEMURAFENIB [Suspect]
     Dates: start: 20111222, end: 20111225
  11. FALITHROM [Concomitant]
  12. EZETIMIBE [Concomitant]
  13. VEMURAFENIB [Suspect]
     Indication: METASTATIC MALIGNANT MELANOMA
     Dosage: LAST DOSE PRIOR TO SAE:30 NOV 2011
     Route: 048
     Dates: start: 20111122
  14. DIGITOXIN TAB [Concomitant]

REACTIONS (2)
  - CHEST PAIN [None]
  - GENERAL PHYSICAL HEALTH DETERIORATION [None]
